FAERS Safety Report 9751677 (Version 2)
Quarter: 2013Q4

REPORT INFORMATION
  Report Type: Spontaneous
  Country: CA (occurrence: CA)
  Receive Date: 20131213
  Receipt Date: 20131213
  Transmission Date: 20140711
  Serious: Yes (Other)
  Sender: FDA-Public Use
  Company Number: CA-AMGEN-CANSP2013063732

PATIENT
  Age: 19 Year
  Sex: Female

DRUGS (5)
  1. ENBREL [Suspect]
     Indication: JUVENILE IDIOPATHIC ARTHRITIS
     Dosage: 50 MG, QWK
     Route: 058
     Dates: start: 201205
  2. ENBREL [Suspect]
     Indication: RHEUMATOID ARTHRITIS
  3. MTX /00113801/ [Suspect]
     Indication: RHEUMATOID ARTHRITIS
     Dosage: 12.5 MG, QWK
     Route: 058
  4. LEUCOVORIN                         /00566701/ [Concomitant]
     Dosage: 6 TABLETS 8 TO 10 HOURS AFTER MTX
  5. PROBIOTIC                          /06395501/ [Concomitant]
     Dosage: UNK

REACTIONS (13)
  - White blood cell count decreased [Not Recovered/Not Resolved]
  - Malaise [Unknown]
  - Nausea [Recovered/Resolved]
  - Blood count abnormal [Recovered/Resolved]
  - Wrong technique in drug usage process [Recovered/Resolved]
  - Insomnia [Recovered/Resolved]
  - Neutrophil count decreased [Recovered/Resolved]
  - Temperature intolerance [Recovered/Resolved]
  - Injection site urticaria [Recovered/Resolved]
  - Injection site erythema [Recovered/Resolved]
  - Injection site pain [Recovered/Resolved]
  - Nasopharyngitis [Recovered/Resolved]
  - Influenza [Unknown]
